FAERS Safety Report 17953189 (Version 1)
Quarter: 2020Q2

REPORT INFORMATION
  Report Type: Spontaneous
  Country: PL (occurrence: PL)
  Receive Date: 20200627
  Receipt Date: 20200627
  Transmission Date: 20200714
  Serious: Yes (Hospitalization)
  Sender: FDA-Public Use
  Company Number: NVSC2020PL175190

PATIENT
  Age: 5 Year
  Sex: Female
  Weight: 16.6 kg

DRUGS (1)
  1. AMOKSIKLAV [Suspect]
     Active Substance: AMOXICILLIN\CLAVULANATE POTASSIUM
     Indication: EAR INFECTION
     Dosage: 5 ML, Q12H
     Route: 048
     Dates: start: 20191220, end: 20191226

REACTIONS (3)
  - Vulval oedema [Recovering/Resolving]
  - Vulvovaginal pruritus [Recovering/Resolving]
  - Rash maculo-papular [Recovering/Resolving]

NARRATIVE: CASE EVENT DATE: 20191227
